FAERS Safety Report 7747517 (Version 6)
Quarter: 2013Q4

REPORT INFORMATION
  Report Type: Spontaneous
  Country: US (occurrence: US)
  Receive Date: 20110104
  Receipt Date: 20131212
  Transmission Date: 20140711
  Serious: Yes (Hospitalization, Other)
  Sender: FDA-Public Use
  Company Number: US-B.I. PHARMACEUTICALS,INC./RIDGEFIELD-2010-BP-14223BP

PATIENT
  Age: 82 Year
  Sex: Female
  Weight: 79.83 kg

DRUGS (24)
  1. PRADAXA [Suspect]
     Indication: ATRIAL FIBRILLATION
     Dosage: 300 MG
     Route: 048
     Dates: start: 201011, end: 201206
  2. PRADAXA [Suspect]
     Indication: ANTICOAGULANT THERAPY
  3. JANUVIA [Concomitant]
     Indication: DIABETES MELLITUS
     Dosage: 100 MG
     Route: 048
  4. B/P MEDICATION [Concomitant]
     Indication: HYPERTENSION
  5. ENTERIC COATED ASPIRIN [Concomitant]
  6. METOPROLOL SUCCINATE [Concomitant]
  7. LISINOPRIL [Concomitant]
     Dosage: 10 MG
     Route: 048
  8. IBUPROFEN [Concomitant]
  9. PROCTOZONE [Concomitant]
  10. HYDROCORTISONE [Concomitant]
  11. KLOR-CON [Concomitant]
  12. TRICOR [Concomitant]
     Dosage: 145 MG
  13. CELEXA [Concomitant]
  14. DILTIAZEM [Concomitant]
     Dosage: 180 MG
     Route: 048
  15. LASIX [Concomitant]
     Dosage: 40 MG
  16. VESICARE [Concomitant]
  17. NEXIUM [Concomitant]
     Dosage: 40 MG
  18. HYDROCODONE [Concomitant]
     Dosage: 500 MG
     Route: 048
  19. GLIMEPERIDE [Concomitant]
     Dosage: 2 MG
     Route: 048
  20. PRAVASTATIN [Concomitant]
     Dosage: 40 MG
     Route: 048
  21. ATENOLOL [Concomitant]
     Dosage: 50 MG
     Route: 048
  22. FENOFIBRATE [Concomitant]
     Dosage: 160 MG
     Route: 048
  23. OXYBUTYNIN [Concomitant]
     Dosage: 10 MG
     Route: 048
  24. POTASSIUM CHLORIDE [Concomitant]
     Dosage: 20 MEQ
     Route: 048

REACTIONS (10)
  - Gastrointestinal haemorrhage [Unknown]
  - Humerus fracture [Unknown]
  - Fall [Unknown]
  - Haemoglobin decreased [Unknown]
  - Haemorrhagic anaemia [Unknown]
  - Coagulopathy [Recovered/Resolved]
  - Nausea [Recovered/Resolved]
  - Vomiting [Recovered/Resolved]
  - Nausea [Not Recovered/Not Resolved]
  - Haematoma [Unknown]
